FAERS Safety Report 15452323 (Version 4)
Quarter: 2018Q4

REPORT INFORMATION
  Report Type: Report from Study
  Country: IL (occurrence: IL)
  Receive Date: 20181001
  Receipt Date: 20181117
  Transmission Date: 20190204
  Serious: Yes (Hospitalization, Other)
  Sender: FDA-Public Use
  Company Number: IL-AMGEN-ISRSL2018109370

PATIENT
  Age: 55 Year
  Sex: Female
  Weight: 105 kg

DRUGS (31)
  1. NPLATE [Suspect]
     Active Substance: ROMIPLOSTIM
     Dosage: 250 MUG, UNK
     Route: 058
     Dates: start: 20180803
  2. CRESTOR [Concomitant]
     Active Substance: ROSUVASTATIN CALCIUM
     Dosage: 40 MG, QD
     Route: 048
  3. ELIQUIS [Concomitant]
     Active Substance: APIXABAN
     Dosage: 5 MG, BID
     Route: 048
  4. NPLATE [Suspect]
     Active Substance: ROMIPLOSTIM
     Dosage: 250 MUG, UNK
     Route: 058
     Dates: start: 20180809
  5. NPLATE [Suspect]
     Active Substance: ROMIPLOSTIM
     Dosage: UNK
     Route: 065
  6. ESCITALOPRAM TEVA [Concomitant]
     Active Substance: ESCITALOPRAM OXALATE
     Dosage: 10 MG, UNK
     Route: 048
  7. LANTON [Concomitant]
     Dosage: 30 MG, QD
     Route: 048
  8. TRITACE [Concomitant]
     Active Substance: RAMIPRIL
     Indication: CHEST PAIN
     Dosage: 5 MG, QD
     Route: 048
  9. ELIQUIS [Concomitant]
     Active Substance: APIXABAN
     Indication: DEEP VEIN THROMBOSIS
     Dosage: 5 MG, QD
     Dates: start: 20180917
  10. ELIQUIS [Concomitant]
     Active Substance: APIXABAN
     Dosage: 10 MG, BID
     Dates: start: 20180918
  11. BISOPROLOL FUMARATE. [Concomitant]
     Active Substance: BISOPROLOL FUMARATE
     Dosage: 2.5 MG, QD
     Route: 048
  12. NPLATE [Suspect]
     Active Substance: ROMIPLOSTIM
     Indication: IMMUNE THROMBOCYTOPENIC PURPURA
     Dosage: 250 MUG, UNK
     Route: 058
     Dates: start: 20180726
  13. NOVORAPID [Concomitant]
     Active Substance: INSULIN ASPART
     Dosage: 100 IU, QD
     Route: 058
  14. ALDACTONE [Concomitant]
     Active Substance: SPIRONOLACTONE
     Dosage: 50 MG, QD
     Route: 048
  15. NPLATE [Suspect]
     Active Substance: ROMIPLOSTIM
     Dosage: 250 MUG, QWK
     Route: 058
     Dates: start: 20180726
  16. TOUJEO [Concomitant]
     Active Substance: INSULIN GLARGINE
     Dosage: 300 UNIT/ML, QD
     Route: 058
  17. LANTON [Concomitant]
     Dosage: 15 MG, QD
     Dates: start: 20180918
  18. V DALGIN [Concomitant]
  19. RAMIPRIL TEVA [Concomitant]
     Active Substance: RAMIPRIL
     Dosage: 5 MG, QD
     Route: 048
  20. CIPRALEX [Concomitant]
     Active Substance: ESCITALOPRAM OXALATE
     Dosage: 10 MG, QD
     Route: 048
  21. NPLATE [Suspect]
     Active Substance: ROMIPLOSTIM
     Dosage: UNK
     Route: 065
  22. CARDILOC [Concomitant]
     Active Substance: BISOPROLOL FUMARATE
     Indication: CHEST PAIN
     Dosage: 2.5 MG, QD
     Route: 048
     Dates: start: 201807
  23. MABTHERA [Concomitant]
     Active Substance: RITUXIMAB
     Dosage: FOUR TREATMENTS/QWK
  24. VASODIP [Concomitant]
     Active Substance: LERCANIDIPINE HYDROCHLORIDE
     Dosage: 10 MG, QD
     Route: 048
  25. LANSOPRAZOLE TEVA [Concomitant]
     Active Substance: LANSOPRAZOLE
     Dosage: 30 MG, QD
     Route: 048
  26. METFORMIN [Concomitant]
     Active Substance: METFORMIN HYDROCHLORIDE
     Dosage: 850 MG, BID
     Route: 048
  27. MICROPIRIN [Concomitant]
     Active Substance: ASPIRIN
     Dosage: 100 MG, QD
     Route: 048
  28. PREDNISONE. [Concomitant]
     Active Substance: PREDNISONE
     Dosage: 40 MG, QD (2 WEEKS)
     Route: 048
  29. CEFOVIT [Concomitant]
     Dosage: 500 MG, QD
  30. ROSUVASTATIN TEVA [Concomitant]
     Active Substance: ROSUVASTATIN
     Dosage: 20 MG, QD
     Route: 048
  31. VITAMIN D3 [Concomitant]
     Active Substance: CHOLECALCIFEROL
     Dosage: 1200 UNIT, QD (30 DAYS)
     Route: 048

REACTIONS (9)
  - Chest pain [Recovered/Resolved]
  - Hyperhidrosis [Recovered/Resolved]
  - Blood glucose increased [Unknown]
  - Blood pressure increased [Recovered/Resolved]
  - Dyspnoea [Recovered/Resolved]
  - Leukocytosis [Recovered/Resolved]
  - Deep vein thrombosis [Unknown]
  - Foreign body [Unknown]
  - Abdominal pain [Unknown]

NARRATIVE: CASE EVENT DATE: 201807
